FAERS Safety Report 6681260-3 (Version None)
Quarter: 2010Q2

REPORT INFORMATION
  Report Type: 
  Country: None (occurrence: None)
  Receive Date: 20100414
  Receipt Date: 20100205
  Transmission Date: 20101027
  Serious: No
  Sender: FDA-Public Use
  Company Number: US-KINGPHARMUSA00001-K201000142

PATIENT
  Sex: Male
  Weight: 58.957 kg

DRUGS (3)
  1. SKELAXIN [Suspect]
     Indication: BACK PAIN
     Dosage: 800 MG, BID
     Route: 048
     Dates: start: 20100101
  2. SKELAXIN [Suspect]
     Indication: ROAD TRAFFIC ACCIDENT
  3. TRAMADOL HCL [Suspect]
     Indication: BACK PAIN
     Dosage: 50 MG, BID
     Route: 048
     Dates: start: 20100101

REACTIONS (1)
  - EJACULATION FAILURE [None]
